FAERS Safety Report 16167057 (Version 1)
Quarter: 2019Q2

REPORT INFORMATION
  Report Type: Other
  Country: PT (occurrence: PT)
  Receive Date: 20190408
  Receipt Date: 20190408
  Transmission Date: 20190711
  Serious: Yes (Other)
  Sender: FDA-Public Use
  Company Number: PT-CELLTRION INC.-2019PT020022

PATIENT

DRUGS (7)
  1. ZOLEDRONIC ACID. [Suspect]
     Active Substance: ZOLEDRONIC ACID
     Indication: HER-2 POSITIVE BREAST CANCER
     Dosage: 1 EVERY 3 MONTHS
     Route: 065
     Dates: start: 201504
  2. TRASTUZUMAB (UNKNOWN) [Suspect]
     Active Substance: TRASTUZUMAB
     Indication: HER-2 POSITIVE BREAST CANCER
     Dosage: UNK
     Route: 065
     Dates: start: 201211, end: 201401
  3. PERTUZUMAB. [Suspect]
     Active Substance: PERTUZUMAB
     Indication: HER-2 POSITIVE BREAST CANCER
     Dosage: UNK
     Route: 065
     Dates: start: 201504
  4. DOCETAXEL. [Suspect]
     Active Substance: DOCETAXEL
     Indication: HER-2 POSITIVE BREAST CANCER
     Dosage: UNK
     Route: 065
     Dates: start: 201504, end: 201507
  5. TRASTUZUMAB (UNKNOWN) [Suspect]
     Active Substance: TRASTUZUMAB
     Dosage: UNK
     Route: 065
     Dates: start: 201504
  6. GOSERELIN [Suspect]
     Active Substance: GOSERELIN
     Indication: HER-2 POSITIVE BREAST CANCER
     Dosage: 1 PER 1 MONTH
     Route: 065
     Dates: start: 201504
  7. PACLITAXEL. [Suspect]
     Active Substance: PACLITAXEL
     Indication: HER-2 POSITIVE BREAST CANCER
     Dosage: UNK
     Route: 065
     Dates: start: 201211, end: 201301

REACTIONS (18)
  - Decreased appetite [Unknown]
  - Dyspnoea [Unknown]
  - Fatigue [Unknown]
  - Metastases to bone [Recovered/Resolved]
  - Metastases to liver [Recovered/Resolved]
  - Osteolysis [Unknown]
  - Right ventricular dysfunction [Unknown]
  - Oedema peripheral [Unknown]
  - Metastases to central nervous system [Unknown]
  - Metastases to central nervous system [Unknown]
  - Bone lesion [Unknown]
  - Metastases to nervous system [Recovered/Resolved]
  - Pulmonary embolism [Unknown]
  - Central nervous system lesion [Unknown]
  - Metastases to lung [Recovered/Resolved]
  - Bone lesion [Unknown]
  - Alopecia [Unknown]
  - Diarrhoea [Unknown]

NARRATIVE: CASE EVENT DATE: 201503
